FAERS Safety Report 7418290-X (Version None)
Quarter: 2011Q2

REPORT INFORMATION
  Report Type: 
  Country: None (occurrence: None)
  Receive Date: 20110415
  Receipt Date: 20110331
  Transmission Date: 20111010
  Serious: Yes (Other)
  Sender: FDA-Public Use
  Company Number: JP-CELGENEUS-087-21880-11033546

PATIENT
  Sex: Male

DRUGS (17)
  1. REVLIMID [Suspect]
     Dosage: 10 MILLIGRAM
     Route: 048
     Dates: start: 20100917, end: 20101007
  2. REVLIMID [Suspect]
     Dosage: 10 MILLIGRAM
     Route: 048
     Dates: start: 20101021, end: 20101110
  3. ZYLORIC [Concomitant]
     Indication: MULTIPLE MYELOMA
     Dosage: 200 MILLIGRAM
     Route: 048
     Dates: start: 20100820, end: 20110216
  4. PARIET [Concomitant]
     Dosage: 10 MILLIGRAM
     Route: 048
     Dates: start: 20100820, end: 20110216
  5. BAKTAR [Concomitant]
     Indication: PROPHYLAXIS
     Dosage: 1 TABLET
     Route: 048
     Dates: start: 20100820, end: 20110216
  6. REVLIMID [Suspect]
     Dosage: 10 MILLIGRAM
     Route: 048
     Dates: start: 20101118, end: 20101208
  7. REVLIMID [Suspect]
     Dosage: 10 MILLIGRAM
     Route: 048
     Dates: start: 20110120, end: 20110209
  8. LENADEX [Suspect]
     Indication: MULTIPLE MYELOMA
     Dosage: 20 MILLIGRAM
     Route: 048
     Dates: start: 20100820, end: 20100903
  9. PREDONINE [Concomitant]
     Indication: MULTIPLE MYELOMA
     Dosage: 5 MILLIGRAM
     Route: 048
     Dates: start: 20100821, end: 20100916
  10. DEPAS [Concomitant]
     Indication: MULTIPLE MYELOMA
     Dosage: 1 MILLIGRAM
     Route: 048
     Dates: start: 20100820, end: 20110216
  11. REVLIMID [Suspect]
     Dosage: 10 MILLIGRAM
     Route: 048
     Dates: start: 20101216, end: 20110105
  12. REVLIMID [Suspect]
     Indication: MULTIPLE MYELOMA
     Dosage: 10 MILLIGRAM
     Route: 048
     Dates: start: 20100820, end: 20100908
  13. LENADEX [Suspect]
     Dosage: 20 MILLIGRAM
     Route: 048
     Dates: start: 20100917, end: 20101112
  14. PREDONINE [Concomitant]
     Dosage: 20 MILLIGRAM
     Route: 048
     Dates: start: 20101118, end: 20110216
  15. LENADEX [Suspect]
     Dosage: 20 MILLIGRAM
     Route: 048
     Dates: start: 20101119, end: 20110211
  16. PREDONINE [Concomitant]
     Dosage: 20 MILLIGRAM
     Route: 048
     Dates: start: 20100917, end: 20101117
  17. KINEDAK [Concomitant]
     Indication: DIABETES MELLITUS
     Dosage: 150 MILLIGRAM
     Route: 048
     Dates: start: 20100820, end: 20110216

REACTIONS (3)
  - DYSPHONIA [None]
  - HYPERGLYCAEMIA [None]
  - OEDEMA PERIPHERAL [None]
